FAERS Safety Report 11286838 (Version 1)
Quarter: 2015Q3

REPORT INFORMATION
  Report Type: Spontaneous
  Country: US (occurrence: US)
  Receive Date: 20150721
  Receipt Date: 20150721
  Transmission Date: 20151125
  Serious: No
  Sender: FDA-Public Use
  Company Number: US-B.I. PHARMACEUTICALS,INC./RIDGEFIELD-2015-BI-37033BP

PATIENT
  Age: 63 Year
  Sex: Female

DRUGS (1)
  1. CATAPRES-TTS [Suspect]
     Active Substance: CLONIDINE
     Indication: HYPERTENSION
     Route: 061
     Dates: start: 2004, end: 2004

REACTIONS (1)
  - Skin irritation [Recovered/Resolved]

NARRATIVE: CASE EVENT DATE: 2004
